FAERS Safety Report 5660182-0 (Version None)
Quarter: 2008Q1

REPORT INFORMATION
  Report Type: 
  Country: None (occurrence: None)
  Receive Date: 20080310
  Receipt Date: 20080310
  Transmission Date: 20080703
  Serious: Yes (Life-Threatening, Hospitalization)
  Sender: FDA-Public Use
  Company Number: None

PATIENT
  Sex: Female
  Weight: 45.3597 kg

DRUGS (1)
  1. XANAX [Suspect]
     Indication: TENSION
     Dosage: 2 MG  2 X PER DAY  PO
     Route: 048

REACTIONS (7)
  - CONVULSION [None]
  - HALLUCINATION [None]
  - HYPOTENSION [None]
  - ILL-DEFINED DISORDER [None]
  - NIGHTMARE [None]
  - SYNCOPE [None]
  - WITHDRAWAL SYNDROME [None]
